FAERS Safety Report 10517802 (Version 2)
Quarter: 2014Q4

REPORT INFORMATION
  Report Type: Spontaneous
  Country: TR (occurrence: TR)
  Receive Date: 20141015
  Receipt Date: 20141119
  Transmission Date: 20150528
  Serious: Yes (Death, Hospitalization, Other)
  Sender: FDA-Public Use
  Company Number: TR-AMGEN-TURSP2014077157

PATIENT
  Age: 45 Year
  Sex: Female

DRUGS (1)
  1. MIMPARA [Suspect]
     Active Substance: CINACALCET HYDROCHLORIDE
     Indication: PRODUCT USED FOR UNKNOWN INDICATION
     Dosage: 90 MG, QD
     Route: 048

REACTIONS (8)
  - Hypercalcaemia [Fatal]
  - Drug ineffective [Unknown]
  - Blood parathyroid hormone increased [Unknown]
  - General physical health deterioration [Unknown]
  - Renal failure [Fatal]
  - Metastases to spine [Unknown]
  - Paraesthesia [Unknown]
  - Back pain [Unknown]
